FAERS Safety Report 18801758 (Version 1)
Quarter: 2021Q1

REPORT INFORMATION
  Report Type: Spontaneous
  Country: HR (occurrence: HR)
  Receive Date: 20210128
  Receipt Date: 20210128
  Transmission Date: 20210419
  Serious: Yes (Death)
  Sender: FDA-Public Use
  Company Number: HR-TEVA-2021-HR-1873026

PATIENT
  Age: 82 Year
  Sex: Female
  Weight: 72 kg

DRUGS (5)
  1. SUMAMED [Suspect]
     Active Substance: AZITHROMYCIN ANHYDROUS
     Indication: SUSPECTED COVID-19
     Dosage: 500 MG
     Route: 048
     Dates: start: 20201228, end: 20201229
  2. PLENDIL [Concomitant]
     Active Substance: FELODIPINE
     Dosage: UNK
     Route: 048
  3. EUTHYROX [Concomitant]
     Active Substance: LEVOTHYROXINE SODIUM
     Dosage: UNK
     Route: 048
  4. MARTEFARIN [Concomitant]
     Active Substance: WARFARIN
     Dosage: UNK
     Route: 048
  5. INSULIN [Concomitant]
     Active Substance: INSULIN NOS
     Dosage: UNK

REACTIONS (11)
  - Blood electrolytes abnormal [Fatal]
  - Arrhythmia [Fatal]
  - Syncope [Fatal]
  - Hyperhidrosis [Fatal]
  - Sopor [Fatal]
  - Muscular weakness [Fatal]
  - Malaise [Fatal]
  - Coma [Fatal]
  - Dyspnoea [Fatal]
  - Dysphagia [Fatal]
  - Renal impairment [Fatal]

NARRATIVE: CASE EVENT DATE: 20201229
